FAERS Safety Report 19412502 (Version 3)
Quarter: 2021Q3

REPORT INFORMATION
  Report Type: Report from Study
  Country: JP (occurrence: JP)
  Receive Date: 20210614
  Receipt Date: 20210715
  Transmission Date: 20211014
  Serious: Yes (Other)
  Sender: FDA-Public Use
  Company Number: JP-UCBSA-2021024245

PATIENT
  Age: 68 Year
  Sex: Male

DRUGS (9)
  1. DOVONEX [Concomitant]
     Active Substance: CALCIPOTRIENE
     Indication: PRODUCT USED FOR UNKNOWN INDICATION
     Dosage: UNK
     Dates: start: 20210301
  2. CERTOLIZUMAB PEGOL [Suspect]
     Active Substance: CERTOLIZUMAB PEGOL
     Indication: PSORIASIS
     Dosage: 400 MILLIGRAM, EV 2 WEEKS(QOW)
     Route: 058
     Dates: start: 20210212, end: 20210226
  3. CERTOLIZUMAB PEGOL [Suspect]
     Active Substance: CERTOLIZUMAB PEGOL
     Dosage: 400 MILLIGRAM, EV 2 WEEKS(QOW)
     Route: 058
     Dates: start: 20210430, end: 20210604
  4. FEBURIC [Concomitant]
     Active Substance: FEBUXOSTAT
     Dosage: 20 MILLIGRAM
     Route: 048
  5. OTEZLA [Concomitant]
     Active Substance: APREMILAST
     Indication: PRODUCT USED FOR UNKNOWN INDICATION
     Dosage: UNK
     Dates: end: 20210211
  6. DOXAZOSIN [Concomitant]
     Active Substance: DOXAZOSIN MESYLATE
     Dosage: 2 MILLIGRAM
     Route: 048
     Dates: start: 20210316
  7. DOVOBET [Concomitant]
     Active Substance: BETAMETHASONE\CALCIPOTRIENE
     Indication: PRODUCT USED FOR UNKNOWN INDICATION
     Dosage: UNK
     Dates: end: 20210301
  8. BONALFAHIGH [Concomitant]
     Active Substance: TACALCITOL
     Indication: PRODUCT USED FOR UNKNOWN INDICATION
     Dosage: UNK
     Dates: start: 20210212, end: 20210316
  9. NIFEDIPINE. [Concomitant]
     Active Substance: NIFEDIPINE
     Dosage: 40 MILLIGRAM
     Route: 048
     Dates: end: 20210315

REACTIONS (2)
  - Eosinophil count increased [Recovered/Resolved]
  - Generalised oedema [Recovering/Resolving]

NARRATIVE: CASE EVENT DATE: 20210307
